FAERS Safety Report 7746044-3 (Version None)
Quarter: 2011Q3

REPORT INFORMATION
  Report Type: 
  Country: None (occurrence: None)
  Receive Date: 20110913
  Receipt Date: 20110831
  Transmission Date: 20111222
  Serious: Yes (Hospitalization)
  Sender: FDA-Public Use
  Company Number: BR-US-EMD SERONO, INC.-7073759

PATIENT
  Sex: Female

DRUGS (2)
  1. REBIF [Suspect]
  2. REBIF [Suspect]
     Indication: RELAPSING-REMITTING MULTIPLE SCLEROSIS
     Dates: start: 20040101, end: 20110101

REACTIONS (3)
  - DYSPNOEA [None]
  - HEART RATE INCREASED [None]
  - DYSPHONIA [None]
